FAERS Safety Report 18979782 (Version 4)
Quarter: 2021Q2

REPORT INFORMATION
  Report Type: Report from Study
  Country: JP (occurrence: JP)
  Receive Date: 20210308
  Receipt Date: 20210414
  Transmission Date: 20210717
  Serious: Yes (Hospitalization)
  Sender: FDA-Public Use
  Company Number: JP-CELLTRION, INC.-2107682

PATIENT
  Age: 34 Year
  Sex: Male
  Weight: 90 kg

DRUGS (5)
  1. AZATHIOPRINE. [Concomitant]
     Active Substance: AZATHIOPRINE
  2. MESALAZINE [Concomitant]
     Active Substance: MESALAMINE
  3. HYDROCORTISONE (HYDROCORTISONE ACETATE) [Concomitant]
     Active Substance: HYDROCORTISONE ACETATE
  4. TRUXIMA [Suspect]
     Active Substance: RITUXIMAB-ABBS
  5. BENZBROMARONE [Concomitant]
     Active Substance: BENZBROMARONE

REACTIONS (1)
  - Subileus [None]
